FAERS Safety Report 26119932 (Version 1)
Quarter: 2025Q4

REPORT INFORMATION
  Report Type: Spontaneous
  Country: CA (occurrence: CA)
  Receive Date: 20251204
  Receipt Date: 20251204
  Transmission Date: 20260117
  Serious: Yes (Other)
  Sender: LEO PHARM
  Company Number: None

PATIENT
  Age: 10 Year
  Sex: Female

DRUGS (9)
  1. TACROLIMUS [Suspect]
     Active Substance: TACROLIMUS
     Indication: Immunosuppression
     Dosage: ASKED BUT UNKNOWN
  2. METHYLPREDNISOLONE SODIUM SUCCINATE [Suspect]
     Active Substance: METHYLPREDNISOLONE SODIUM SUCCINATE
     Indication: Immunosuppression
     Dosage: ASKED BUT UNKNOWN
     Route: 042
  3. THYMOGLOBULIN [Suspect]
     Active Substance: LAPINE T-LYMPHOCYTE IMMUNE GLOBULIN
     Indication: Immunosuppression
     Dosage: 6.0 MG/KG POWDER FOR SOLUTION INTRAVENOUS
  4. MYCOPHENOLATE MOFETIL [Suspect]
     Active Substance: MYCOPHENOLATE MOFETIL
     Indication: Immunosuppression
     Dosage: 750.0 MG/M2 EVERY 1 DAYS
  5. MYCOPHENOLATE MOFETIL [Suspect]
     Active Substance: MYCOPHENOLATE MOFETIL
     Indication: Immunosuppression
     Dosage: 530.0 MG/M2 EVERY 1 DAYS, THERAPY DURATION: 5.0 MONTHS
  6. PREDNISONE [Suspect]
     Active Substance: PREDNISONE
     Indication: Immunosuppression
     Dosage: 2.5 MILLIGRAM 1 EVERY 1 DAYS
  7. PREDNISONE [Suspect]
     Active Substance: PREDNISONE
     Indication: Immunosuppression
     Dosage: 0.1 MG/KG 1 EVERY 2 DAYS
  8. TACROLIMUS [Suspect]
     Active Substance: TACROLIMUS
     Indication: Immunosuppression
     Dosage: ASKED BUT UNKNOWN
  9. TACROLIMUS [Suspect]
     Active Substance: TACROLIMUS
     Indication: Immunosuppression
     Dosage: ASKED BUT UNKNOWN
     Route: 048

REACTIONS (3)
  - Viraemia [Recovered/Resolved]
  - Product use in unapproved indication [Unknown]
  - Trichodysplasia spinulosa [Recovered/Resolved]
